FAERS Safety Report 6874498-3 (Version None)
Quarter: 2010Q3

REPORT INFORMATION
  Report Type: 
  Country: None (occurrence: None)
  Receive Date: 20100723
  Receipt Date: 20100723
  Transmission Date: 20110219
  Serious: Yes (Other)
  Sender: FDA-Public Use
  Company Number: None

PATIENT
  Age: 30 Year
  Sex: Female
  Weight: 98.8842 kg

DRUGS (1)
  1. MIRENA LEVONORGESTREL 20 MCG PER DAY BAYER [Suspect]

REACTIONS (4)
  - ANXIETY [None]
  - DEPRESSION [None]
  - MOOD SWINGS [None]
  - WEIGHT INCREASED [None]
